FAERS Safety Report 16932343 (Version 1)
Quarter: 2019Q4

REPORT INFORMATION
  Report Type: Spontaneous
  Country: US (occurrence: US)
  Receive Date: 20191017
  Receipt Date: 20191017
  Transmission Date: 20200122
  Serious: No
  Sender: FDA-Public Use
  Company Number: US-C B FLEET CO INC-201906-US-001600

PATIENT
  Sex: Female

DRUGS (1)
  1. MICONAZOLE NITRATE. [Suspect]
     Active Substance: MICONAZOLE NITRATE
     Indication: VULVOVAGINAL PRURITUS
     Dosage: CONSUMER STATED SHE USED THE M1 OVULE, THE EXACT PRODUCT IS NOT KNOWN
     Route: 067
     Dates: start: 20190530

REACTIONS (2)
  - Vulvovaginal swelling [Recovering/Resolving]
  - Condition aggravated [Recovering/Resolving]
